FAERS Safety Report 7512455-4 (Version None)
Quarter: 2011Q2

REPORT INFORMATION
  Report Type: 
  Country: None (occurrence: None)
  Receive Date: 20110531
  Receipt Date: 20110525
  Transmission Date: 20111010
  Serious: Yes (Other)
  Sender: FDA-Public Use
  Company Number: CL-PFIZER INC-2011114685

PATIENT
  Age: 68 Year
  Sex: Female

DRUGS (1)
  1. VARENICLINE TARTRATE [Suspect]
     Indication: SMOKING CESSATION THERAPY
     Dosage: 0.5 MG, 1X/DAY
     Route: 048
     Dates: start: 20110521

REACTIONS (4)
  - INCORRECT DOSE ADMINISTERED [None]
  - DIZZINESS [None]
  - DEPRESSED MOOD [None]
  - BLOOD PRESSURE INCREASED [None]
